FAERS Safety Report 8725464 (Version 2)
Quarter: 2013Q1

REPORT INFORMATION
  Report Type: Spontaneous
  Country: JP (occurrence: JP)
  Receive Date: 20120815
  Receipt Date: 20130102
  Transmission Date: 20140127
  Serious: Yes (Other)
  Sender: FDA-Public Use
  Company Number: JP-ROCHE-1082917

PATIENT
  Age: 52 Year
  Sex: Male
  Weight: 74 kg

DRUGS (15)
  1. AVASTIN [Suspect]
     Indication: COLON CANCER METASTATIC
     Route: 041
     Dates: start: 20100428, end: 20101008
  2. AVASTIN [Suspect]
     Route: 041
     Dates: end: 20110812
  3. XELODA [Suspect]
     Indication: COLON CANCER METASTATIC
     Dosage: DOSE REDUCED
     Route: 048
     Dates: start: 20100428, end: 201007
  4. XELODA [Suspect]
     Route: 048
     Dates: start: 20100806, end: 201010
  5. OXALIPLATIN [Suspect]
     Indication: COLON CANCER METASTATIC
     Route: 041
     Dates: start: 20100428, end: 20100709
  6. OXALIPLATIN [Suspect]
     Route: 041
     Dates: start: 20100806, end: 20100806
  7. OXALIPLATIN [Suspect]
     Route: 041
     Dates: start: 20100827, end: 20101008
  8. TS-1 [Concomitant]
     Indication: COLON CANCER METASTATIC
     Dosage: 2 WEEKS ADMINISTRATION FOLLOWED BY 1 WEEK REST
     Route: 048
  9. IRINOTECAN HYDROCHLORIDE [Concomitant]
     Indication: COLON CANCER METASTATIC
     Route: 041
  10. KYTRIL [Concomitant]
     Indication: PROPHYLAXIS OF NAUSEA AND VOMITING
     Route: 041
     Dates: start: 20100428, end: 20101008
  11. KYTRIL [Concomitant]
     Indication: PROPHYLAXIS OF NAUSEA AND VOMITING
     Route: 048
     Dates: start: 20100429, end: 20101011
  12. DECADRON [Concomitant]
     Indication: PROPHYLAXIS OF NAUSEA AND VOMITING
     Route: 041
     Dates: start: 20100428, end: 20101008
  13. AMLODIN [Concomitant]
     Route: 048
  14. TANATRIL [Concomitant]
     Route: 048
  15. PROMAC [Concomitant]
     Route: 048
     Dates: start: 20100709

REACTIONS (2)
  - Hepatic function abnormal [Recovered/Resolved]
  - Platelet count decreased [Recovered/Resolved]
